FAERS Safety Report 17952095 (Version 3)
Quarter: 2020Q3

REPORT INFORMATION
  Report Type: Report from Study
  Country: US (occurrence: US)
  Receive Date: 20200626
  Receipt Date: 20200904
  Transmission Date: 20201103
  Serious: Yes (Other)
  Sender: FDA-Public Use
  Company Number: NVSC2020US178524

PATIENT
  Age: 74 Year
  Sex: Female

DRUGS (2)
  1. ENTRESTO [Suspect]
     Active Substance: SACUBITRIL\VALSARTAN
     Indication: CARDIAC FAILURE
     Dosage: UNK
     Route: 048
  2. ENTRESTO [Suspect]
     Active Substance: SACUBITRIL\VALSARTAN
     Route: 048

REACTIONS (9)
  - Dehydration [Unknown]
  - Memory impairment [Unknown]
  - Vomiting [Unknown]
  - Arterial rupture [Unknown]
  - Loss of consciousness [Unknown]
  - Oedema peripheral [Unknown]
  - Arteriosclerosis [Unknown]
  - Thinking abnormal [Unknown]
  - Stress [Unknown]
